FAERS Safety Report 5890187-6 (Version None)
Quarter: 2008Q3

REPORT INFORMATION
  Report Type: 
  Country: None (occurrence: None)
  Receive Date: 20080919
  Receipt Date: 20080908
  Transmission Date: 20090109
  Serious: Yes (Death)
  Sender: FDA-Public Use
  Company Number: JP-PFIZER INC-2008075408

PATIENT
  Sex: Male

DRUGS (2)
  1. ZYVOX [Suspect]
     Indication: PNEUMONIA
     Route: 042
     Dates: start: 20080708, end: 20080722
  2. OPALMON [Concomitant]

REACTIONS (1)
  - DEATH [None]
